FAERS Safety Report 22810198 (Version 2)
Quarter: 2024Q1

REPORT INFORMATION
  Report Type: Spontaneous
  Country: CA (occurrence: CA)
  Receive Date: 20230810
  Receipt Date: 20240201
  Transmission Date: 20240410
  Serious: Yes (Other)
  Sender: FDA-Public Use
  Company Number: CA-002147023-NVSC2023CA173892

PATIENT
  Sex: Female

DRUGS (2)
  1. LETROZOLE [Suspect]
     Active Substance: LETROZOLE
     Indication: Ovarian cancer
     Dosage: 2.5 MG, QD
     Route: 065
     Dates: start: 20210217, end: 20220414
  2. MEGACE [Suspect]
     Active Substance: MEGESTROL ACETATE
     Indication: Ovarian cancer
     Dosage: UNK, QD
     Route: 065
     Dates: start: 20220421, end: 20230731

REACTIONS (5)
  - Ovarian cancer [Unknown]
  - Malignant neoplasm progression [Unknown]
  - Intestinal obstruction [Unknown]
  - Abdominal distension [Unknown]
  - Product use in unapproved indication [Unknown]
